FAERS Safety Report 7943240-7 (Version None)
Quarter: 2011Q4

REPORT INFORMATION
  Report Type: 
  Country: None (occurrence: None)
  Receive Date: 20111128
  Receipt Date: 20111122
  Transmission Date: 20120403
  Serious: Yes (Other)
  Sender: FDA-Public Use
  Company Number: PHEH2011US010021

PATIENT
  Sex: Male

DRUGS (7)
  1. BACLOFEN [Concomitant]
     Dosage: UNK UKN, TWICE DAILY
  2. TIZANIDINE HCL [Concomitant]
     Dosage: 2 MG, TID
  3. SUMATRIPTAN [Concomitant]
     Dosage: 100 MG, PRN
  4. OXYBUTYNIN [Concomitant]
     Dosage: 10 MG, QD
  5. WELLBUTRIN XL [Concomitant]
     Dosage: 450 MG, BID
  6. GILENYA [Suspect]
     Dosage: 0.5 MG, QD
     Route: 048
  7. PREVACID [Concomitant]
     Dosage: 40 MG, QD

REACTIONS (5)
  - DIPLOPIA [None]
  - MOOD SWINGS [None]
  - ARTHRALGIA [None]
  - FALL [None]
  - DIZZINESS [None]
